FAERS Safety Report 25653585 (Version 3)
Quarter: 2025Q3

REPORT INFORMATION
  Report Type: Spontaneous
  Country: EU (occurrence: EU)
  Receive Date: 20250807
  Receipt Date: 20250912
  Transmission Date: 20251020
  Serious: Yes (Other)
  Sender: SAMSUNG BIOEPIS
  Company Number: EU-SAMSUNG BIOEPIS-SB-2025-26636

PATIENT
  Age: 31 Year
  Sex: Female
  Weight: 84 kg

DRUGS (1)
  1. IMRALDI [Suspect]
     Active Substance: ADALIMUMAB
     Indication: Hidradenitis
     Dosage: 40 MG/0.8 ML;
     Route: 058
     Dates: start: 20241113

REACTIONS (5)
  - Alopecia areata [Not Recovered/Not Resolved]
  - Shock [Unknown]
  - Iron deficiency anaemia [Unknown]
  - Vitamin D decreased [Unknown]
  - Anxiety [Unknown]

NARRATIVE: CASE EVENT DATE: 20250618
